FAERS Safety Report 6780105-0 (Version None)
Quarter: 2010Q2

REPORT INFORMATION
  Report Type: 
  Country: None (occurrence: None)
  Receive Date: 20100618
  Receipt Date: 20100610
  Transmission Date: 20101027
  Serious: Yes (Other)
  Sender: FDA-Public Use
  Company Number: US-JNJFOC-20100603619

PATIENT
  Age: 53 Year
  Sex: Female
  Weight: 113.4 kg

DRUGS (4)
  1. TYLENOL 8 HOUR MUSCLES + PAIN [Suspect]
     Route: 048
  2. TYLENOL 8 HOUR MUSCLES + PAIN [Suspect]
     Indication: MYALGIA
     Route: 048
  3. PROZAC [Concomitant]
     Indication: DEPRESSION
  4. BUPROPION HCL [Concomitant]
     Indication: DEPRESSION

REACTIONS (4)
  - DIVERTICULUM [None]
  - DIZZINESS [None]
  - FEELING ABNORMAL [None]
  - MEMORY IMPAIRMENT [None]
